FAERS Safety Report 11007950 (Version 1)
Quarter: 2015Q2

REPORT INFORMATION
  Report Type: Spontaneous
  Country: US (occurrence: US)
  Receive Date: 20150410
  Receipt Date: 20150410
  Transmission Date: 20150821
  Serious: Yes (Death, Hospitalization, Other)
  Sender: FDA-Public Use
  Company Number: PHHY2015US040045

PATIENT
  Age: 43 Year
  Sex: Female

DRUGS (3)
  1. WARFARIN [Suspect]
     Active Substance: WARFARIN
     Indication: ANTIPHOSPHOLIPID SYNDROME
     Dosage: 7.5 MG, UNK
     Route: 065
  2. WARFARIN [Suspect]
     Active Substance: WARFARIN
     Indication: DEEP VEIN THROMBOSIS
     Dosage: 7.5 MG, UNK
     Route: 065
  3. WARFARIN [Suspect]
     Active Substance: WARFARIN
     Indication: PULMONARY EMBOLISM

REACTIONS (10)
  - Ischaemic stroke [Unknown]
  - Thrombocytopenia [Unknown]
  - Erythema [Unknown]
  - Multi-organ failure [Fatal]
  - Skin necrosis [Unknown]
  - Skin lesion [Unknown]
  - Pyrexia [Unknown]
  - Hypotension [Unknown]
  - Septic shock [Unknown]
  - Pneumonia [Unknown]
